FAERS Safety Report 26113695 (Version 1)
Quarter: 2025Q4

REPORT INFORMATION
  Report Type: Spontaneous
  Country: US (occurrence: None)
  Receive Date: 20251202
  Receipt Date: 20251202
  Transmission Date: 20260118
  Serious: No
  Sender: INCYTE
  Company Number: US-INCYTE CORPORATION-2025IN013174

PATIENT
  Age: 9 Year

DRUGS (1)
  1. JAKAFI [Suspect]
     Active Substance: RUXOLITINIB
     Indication: Chronic graft versus host disease
     Dosage: 7.5 MILLIGRAM, BID

REACTIONS (3)
  - Headache [Unknown]
  - Wrong technique in product usage process [Unknown]
  - Off label use [Unknown]
